FAERS Safety Report 19905648 (Version 3)
Quarter: 2021Q4

REPORT INFORMATION
  Report Type: Report from Study
  Country: CN (occurrence: CN)
  Receive Date: 20210930
  Receipt Date: 20211110
  Transmission Date: 20220303
  Serious: Yes (Hospitalization)
  Sender: FDA-Public Use
  Company Number: CN-PFIZER INC-202101226276

PATIENT
  Age: 72 Year
  Sex: Male
  Weight: 60 kg

DRUGS (35)
  1. PACLITAXEL [Suspect]
     Active Substance: PACLITAXEL
     Indication: Lung squamous cell carcinoma stage IV
     Dosage: 270 MG, INTRAVENOUS INFUSION, 1X/3 WEEKS, FIRST CYCLE
     Route: 041
     Dates: start: 20210617, end: 20210617
  2. PACLITAXEL [Suspect]
     Active Substance: PACLITAXEL
     Dosage: 278 MG, SECOND CYCLE
     Dates: start: 20210708, end: 20210708
  3. PACLITAXEL [Suspect]
     Active Substance: PACLITAXEL
     Dosage: 278 MG, THIRD CYCLE
     Dates: start: 20210729, end: 20210729
  4. PACLITAXEL [Suspect]
     Active Substance: PACLITAXEL
     Dosage: 278 MG, FOURTH CYCLE
     Dates: start: 20210819, end: 20210819
  5. INVESTIGATIONAL PRODUCT [Suspect]
     Active Substance: INVESTIGATIONAL PRODUCT
     Indication: Lung squamous cell carcinoma stage III
     Dosage: FIRST CYCLE
     Route: 041
     Dates: start: 20210617
  6. INVESTIGATIONAL PRODUCT [Suspect]
     Active Substance: INVESTIGATIONAL PRODUCT
     Dosage: SECOND CYCLE
     Dates: start: 20210708
  7. INVESTIGATIONAL PRODUCT [Suspect]
     Active Substance: INVESTIGATIONAL PRODUCT
     Dosage: THIRD CYCLE
     Dates: start: 20210729
  8. INVESTIGATIONAL PRODUCT [Suspect]
     Active Substance: INVESTIGATIONAL PRODUCT
     Dosage: FOURTH CYCLE
     Dates: start: 20210819
  9. CARBOPLATIN [Suspect]
     Active Substance: CARBOPLATIN
     Dosage: 420 MG, 1X/3 WEEKS, FIRST CYCLE
     Route: 041
     Dates: start: 20210617, end: 20210617
  10. CARBOPLATIN [Suspect]
     Active Substance: CARBOPLATIN
     Dosage: 380 MG. SECOND CYCLE
     Dates: start: 20210708, end: 20210708
  11. CARBOPLATIN [Suspect]
     Active Substance: CARBOPLATIN
     Dosage: 434 MG. THIRD CYCLE
     Dates: start: 20210729, end: 20210729
  12. CARBOPLATIN [Suspect]
     Active Substance: CARBOPLATIN
     Dosage: 354 MG, EVERY 3 WEEKS,  FOURTH CYCLE
     Dates: start: 20210819, end: 20210819
  13. LEUCOGEN [Concomitant]
     Active Substance: LEUCOGEN
     Indication: Prophylaxis
     Dosage: 20 MG, 3X/DAY
     Route: 048
     Dates: start: 20210710, end: 20210828
  14. LEUCOGEN [Concomitant]
     Active Substance: LEUCOGEN
     Indication: Thrombocytopenia
     Dosage: 20 MG, 3X/DAY
     Route: 048
     Dates: start: 20210909, end: 20211005
  15. LEUCOGEN [Concomitant]
     Active Substance: LEUCOGEN
     Indication: Neutropenia
  16. LEUCOGEN [Concomitant]
     Active Substance: LEUCOGEN
     Indication: Leukopenia
  17. BATILOL [Concomitant]
     Active Substance: BATILOL
     Indication: Neutropenia
     Dosage: 20 MG, 3X/DAY, REPORTED AS TABELLAE BATILOLI
     Route: 048
     Dates: start: 20210825, end: 20210828
  18. BATILOL [Concomitant]
     Active Substance: BATILOL
     Indication: Leukopenia
     Dosage: 20 MG, 3X/DAY, REPORTED AS TABELLAE BATILOLI
     Route: 048
     Dates: start: 20210909, end: 20211005
  19. L-GLUTAMINE AND SODIUM GUALENATE [Concomitant]
     Indication: Prophylaxis
     Dosage: 0.67 G, 3X/DAY, GRANULES
     Route: 048
     Dates: start: 20210818, end: 20210824
  20. OMEPRAZOLE [Concomitant]
     Active Substance: OMEPRAZOLE
     Indication: Prophylaxis
     Dosage: 20 MG, 1X/DAY, ENTERIC-COATED CAPSULES
     Route: 048
     Dates: start: 20210818, end: 20210824
  21. COMPOUND LIQUORICE [Concomitant]
     Indication: Cough
     Dosage: 2 TABLETS, 3X/DAY
     Route: 048
     Dates: start: 20210821, end: 20210825
  22. COMPOUND LIQUORICE [Concomitant]
     Indication: Lung neoplasm malignant
  23. DEXAMETHASONE [Concomitant]
     Active Substance: DEXAMETHASONE
     Indication: Allergy prophylaxis
     Dosage: 13 TABLETS, 1X/DAY
     Route: 048
     Dates: start: 20210818, end: 20210819
  24. DEXAMETHASONE [Concomitant]
     Active Substance: DEXAMETHASONE
     Indication: Allergy prophylaxis
     Dosage: 5 MG, ST, INTRAVENOUS INFUSION
     Route: 042
     Dates: start: 20210819, end: 20210819
  25. ONDANSETRON HYDROCHLORIDE [Concomitant]
     Active Substance: ONDANSETRON HYDROCHLORIDE
     Indication: Prophylaxis of nausea and vomiting
     Dosage: 8 MG, ST, INTRAVENOUS INFUSION, LOCAL ONDANSETRON
     Route: 042
     Dates: start: 20210819, end: 20210819
  26. DIPHENHYDRAMINE [Concomitant]
     Active Substance: DIPHENHYDRAMINE
     Indication: Allergy prophylaxis
     Dosage: 25 MG, ST
     Route: 030
     Dates: start: 20210819, end: 20210819
  27. DIPHENHYDRAMINE [Concomitant]
     Active Substance: DIPHENHYDRAMINE
     Dosage: 50 MG, ST
     Route: 030
     Dates: start: 20210819, end: 20210819
  28. CIMETIDINE [Concomitant]
     Active Substance: CIMETIDINE
     Indication: Allergy prophylaxis
     Dosage: 400 MG, ST, INTRAVENOUS INFUSION
     Route: 042
     Dates: start: 20210819, end: 20210819
  29. CIMETIDINE [Concomitant]
     Active Substance: CIMETIDINE
     Dosage: 300 MG, ST, INTRAVENOUS INFUSION
     Route: 042
     Dates: start: 20210819, end: 20210819
  30. ACETAMINOPHEN [Concomitant]
     Active Substance: ACETAMINOPHEN
     Indication: Prophylaxis
     Dosage: 5 ML, ST, SUSPENSION
     Route: 048
     Dates: start: 20210819, end: 20210819
  31. GRANULOCYTE COLONY-STIMULATING FACTOR NOS [Concomitant]
     Active Substance: GRANULOCYTE COLONY-STIMULATING FACTOR NOS
     Indication: Neutropenia
     Dosage: 0.4 ML, 1X/DAY
     Route: 058
     Dates: start: 20210825, end: 20210827
  32. GRANULOCYTE COLONY-STIMULATING FACTOR NOS [Concomitant]
     Active Substance: GRANULOCYTE COLONY-STIMULATING FACTOR NOS
     Indication: Leukopenia
     Dosage: 1.2 ML, ST
     Route: 058
     Dates: start: 20210828, end: 20210828
  33. GRANULOCYTE COLONY-STIMULATING FACTOR NOS [Concomitant]
     Active Substance: GRANULOCYTE COLONY-STIMULATING FACTOR NOS
     Indication: Prophylaxis
     Dosage: 0.4 ML, ST
     Route: 058
     Dates: start: 20210821, end: 20210823
  34. GRANULOCYTE COLONY-STIMULATING FACTOR NOS [Concomitant]
     Active Substance: GRANULOCYTE COLONY-STIMULATING FACTOR NOS
     Dosage: 0.8 ML, ST
     Route: 058
     Dates: start: 20210819, end: 20210819
  35. GRANULOCYTE COLONY-STIMULATING FACTOR NOS [Concomitant]
     Active Substance: GRANULOCYTE COLONY-STIMULATING FACTOR NOS
     Dosage: 0.4 ML, ST
     Route: 058
     Dates: start: 20210914, end: 20210916

REACTIONS (1)
  - Myocardial injury [Recovered/Resolved]

NARRATIVE: CASE EVENT DATE: 20210828
